FAERS Safety Report 7222552-9 (Version None)
Quarter: 2011Q1

REPORT INFORMATION
  Report Type: 
  Country: None (occurrence: None)
  Receive Date: 20110112
  Receipt Date: 20110105
  Transmission Date: 20110831
  Serious: Yes (Other)
  Sender: FDA-Public Use
  Company Number: CA-PFIZER INC-2011002545

PATIENT
  Age: 76 Year
  Sex: Female

DRUGS (2)
  1. ZITHROMAX [Suspect]
     Dosage: UNK
     Dates: start: 20101231, end: 20110104
  2. ARICEPT [Suspect]
     Indication: DEMENTIA ALZHEIMER'S TYPE
     Dosage: UNK

REACTIONS (2)
  - COGNITIVE DISORDER [None]
  - CONFUSIONAL STATE [None]
